FAERS Safety Report 16542767 (Version 1)
Quarter: 2019Q3

REPORT INFORMATION
  Report Type: Spontaneous
  Country: JP (occurrence: JP)
  Receive Date: 20190709
  Receipt Date: 20190709
  Transmission Date: 20191004
  Serious: Yes (Other)
  Sender: FDA-Public Use
  Company Number: JP-ORION CORPORATION ORION PHARMA-ENTC2019-0171

PATIENT
  Age: 63 Year
  Sex: Male

DRUGS (3)
  1. MAGNESIUM [Concomitant]
     Active Substance: MAGNESIUM
     Route: 065
  2. MENESIT [Concomitant]
     Active Substance: CARBIDOPA\LEVODOPA
     Dosage: 200 MG OF LEVODOPA IN ONE ADMINISTRATION
     Route: 065
  3. STALEVO [Suspect]
     Active Substance: CARBIDOPA\ENTACAPONE\LEVODOPA
     Indication: PARKINSON^S DISEASE
     Dosage: STRENGTH: LCE-100/10/100MG
     Route: 048

REACTIONS (3)
  - Saliva discolouration [Unknown]
  - Parkinson^s disease [Unknown]
  - Salivary hypersecretion [Unknown]
